FAERS Safety Report 5748781-9 (Version None)
Quarter: 2008Q2

REPORT INFORMATION
  Report Type: 
  Country: None (occurrence: None)
  Receive Date: 20080521
  Receipt Date: 20080514
  Transmission Date: 20081010
  Serious: Yes (Hospitalization)
  Sender: FDA-Public Use
  Company Number: 2008SP006995

PATIENT
  Age: 68 Year
  Sex: Male

DRUGS (7)
  1. TEMOZOLOMIDE [Suspect]
     Indication: METASTATIC MALIGNANT MELANOMA
     Dosage: 300 MG; QD; PO
     Route: 048
     Dates: start: 20080131, end: 20080410
  2. AVASTIN [Suspect]
     Indication: METASTATIC MALIGNANT MELANOMA
     Dosage: 800 MG; ; IV
     Route: 042
     Dates: start: 20080131, end: 20080410
  3. ZOFRAN [Concomitant]
  4. MOTILIUM [Concomitant]
  5. DUROGESIC TTS [Concomitant]
  6. DURAGESIC-100 [Concomitant]
  7. DAFALGAN /00020001/ [Concomitant]

REACTIONS (5)
  - ANAEMIA [None]
  - GASTROENTERITIS SALMONELLA [None]
  - LYMPHOPENIA [None]
  - PLATELET COUNT ABNORMAL [None]
  - PYREXIA [None]
